FAERS Safety Report 17671610 (Version 1)
Quarter: 2020Q2

REPORT INFORMATION
  Report Type: Spontaneous
  Country: IT (occurrence: IT)
  Receive Date: 20200415
  Receipt Date: 20200415
  Transmission Date: 20200713
  Serious: Yes (Hospitalization, Other)
  Sender: FDA-Public Use
  Company Number: IT-MYLANLABS-2020M1038295

PATIENT
  Age: 41 Year
  Sex: Female
  Weight: 70 kg

DRUGS (2)
  1. LARGACTIL                          /00011902/ [Suspect]
     Active Substance: CHLORPROMAZINE HYDROCHLORIDE
     Indication: PRODUCT USED FOR UNKNOWN INDICATION
     Dosage: 5 MILLILITER, TOTAL
     Route: 048
     Dates: start: 20200308, end: 20200308
  2. FRONTAL [Suspect]
     Active Substance: ALPRAZOLAM
     Indication: PRODUCT USED FOR UNKNOWN INDICATION
     Dosage: 5 DOSAGE FORM, TOTAL
     Route: 048
     Dates: start: 20200308, end: 20200308

REACTIONS (4)
  - Sopor [Not Recovered/Not Resolved]
  - Intentional overdose [Not Recovered/Not Resolved]
  - Drug abuse [Unknown]
  - Somnolence [Not Recovered/Not Resolved]

NARRATIVE: CASE EVENT DATE: 20200308
